FAERS Safety Report 26195354 (Version 1)
Quarter: 2025Q4

REPORT INFORMATION
  Report Type: Spontaneous
  Country: GB (occurrence: GB)
  Receive Date: 20251224
  Receipt Date: 20251224
  Transmission Date: 20260117
  Serious: Yes (Other)
  Sender: GE HEALTHCARE
  Company Number: None

PATIENT
  Sex: Female

DRUGS (1)
  1. OMNIPAQUE [Suspect]
     Active Substance: IOHEXOL
     Indication: Scan with contrast
     Dosage: 80 ML, TOTAL
     Route: 065
     Dates: start: 20251213, end: 20251213

REACTIONS (1)
  - Hypertonic bladder [Recovered/Resolved]

NARRATIVE: CASE EVENT DATE: 20251213
